FAERS Safety Report 8114071-2 (Version None)
Quarter: 2012Q1

REPORT INFORMATION
  Report Type: 
  Country: None (occurrence: None)
  Receive Date: 20120203
  Receipt Date: 20120130
  Transmission Date: 20120608
  Serious: Yes (Life-Threatening, Other)
  Sender: FDA-Public Use
  Company Number: US-ASTRAZENECA-2011SE58599

PATIENT
  Age: 34 Year
  Sex: Female

DRUGS (2)
  1. SYMBICORT [Suspect]
     Route: 055
  2. ACCOLATE [Suspect]
     Route: 048

REACTIONS (2)
  - ASTHMA [None]
  - INFECTIOUS MONONUCLEOSIS [None]
